FAERS Safety Report 6053932-5 (Version None)
Quarter: 2009Q1

REPORT INFORMATION
  Report Type: 
  Country: None (occurrence: None)
  Receive Date: 20090123
  Receipt Date: 20090123
  Transmission Date: 20090719
  Serious: Yes (Other)
  Sender: FDA-Public Use
  Company Number: None

PATIENT
  Age: 60 Year
  Sex: Male
  Weight: 64 kg

DRUGS (1)
  1. CEPHALEXIN [Suspect]
     Indication: BACTERIAL INFECTION

REACTIONS (2)
  - PRURITUS [None]
  - URTICARIA [None]
